FAERS Safety Report 9702049 (Version 1)
Quarter: 2013Q4

REPORT INFORMATION
  Report Type: Report from Study
  Country: US (occurrence: US)
  Receive Date: 20131121
  Receipt Date: 20131121
  Transmission Date: 20140711
  Serious: Yes (Hospitalization)
  Sender: FDA-Public Use
  Company Number: US-ABBVIE-13P-163-1168198-00

PATIENT
  Age: 57 Year
  Sex: Male
  Weight: 86.26 kg

DRUGS (4)
  1. HUMIRA [Suspect]
     Indication: AUTOIMMUNE DISORDER
     Dates: start: 2011
  2. HUMIRA [Suspect]
     Indication: ANKYLOSING SPONDYLITIS
     Dates: end: 201306
  3. HUMIRA [Suspect]
     Indication: POLYMYALGIA RHEUMATICA
  4. PRAVASTATIN [Concomitant]
     Indication: BLOOD CHOLESTEROL INCREASED
     Dates: start: 2013

REACTIONS (7)
  - Influenza like illness [Recovered/Resolved]
  - Legionella infection [Recovered/Resolved]
  - Pyrexia [Recovered/Resolved]
  - Pneumonia [Recovered/Resolved]
  - Autoimmune disorder [Recovered/Resolved]
  - Liver function test abnormal [Recovered/Resolved]
  - Renal function test abnormal [Recovered/Resolved]
